FAERS Safety Report 7460598-6 (Version None)
Quarter: 2011Q2

REPORT INFORMATION
  Report Type: 
  Country: None (occurrence: None)
  Receive Date: 20110505
  Receipt Date: 20110502
  Transmission Date: 20111010
  Serious: Yes (Hospitalization, Other)
  Sender: FDA-Public Use
  Company Number: US-PFIZER INC-2011032286

PATIENT
  Sex: Male

DRUGS (26)
  1. SEROQUEL [Concomitant]
     Indication: POST-TRAUMATIC STRESS DISORDER
  2. BETAMETHASONE [Concomitant]
     Indication: ECZEMA NUMMULAR
     Dosage: UNK
     Dates: start: 20060101, end: 20080101
  3. CEPHALEXIN [Concomitant]
     Indication: ANTIBIOTIC THERAPY
     Dosage: UNK
     Dates: start: 20060101, end: 20080101
  4. NICOTINE [Concomitant]
     Indication: SMOKING CESSATION THERAPY
     Dosage: UNK
     Route: 062
     Dates: start: 20060101, end: 20080101
  5. SIMVASTATIN [Concomitant]
     Indication: HYPERLIPIDAEMIA
     Dosage: UNK
     Dates: start: 20060101, end: 20090101
  6. CITALOPRAM [Concomitant]
     Indication: DEPRESSION
     Dosage: UNK
     Dates: start: 20050101, end: 20080101
  7. SEROQUEL [Concomitant]
     Indication: SCHIZOAFFECTIVE DISORDER
  8. ACETAMINOPHEN AND HYDROCODONE BITARTRATE [Concomitant]
     Indication: JOINT INJURY
  9. ACETAMINOPHEN AND HYDROCODONE BITARTRATE [Concomitant]
     Indication: HAND FRACTURE
  10. ZYPREXA [Concomitant]
     Indication: SCHIZOAFFECTIVE DISORDER
     Dosage: UNK
     Dates: start: 20050101, end: 20090101
  11. HYDROXYZINE [Concomitant]
     Indication: ECZEMA NUMMULAR
     Dosage: UNK
     Dates: start: 20050101, end: 20100101
  12. ATENOLOL [Concomitant]
     Indication: HYPERTENSION
     Dosage: UNK
     Dates: start: 20060101, end: 20090101
  13. CHANTIX [Suspect]
     Indication: SMOKING CESSATION THERAPY
     Dosage: STARTER AND CONTINUING MONTH PACK
     Dates: start: 20070701, end: 20090601
  14. SEROQUEL [Concomitant]
     Indication: DEPRESSION
     Dosage: UNK
     Dates: start: 20050101, end: 20100101
  15. ALBUTEROL [Concomitant]
     Indication: ASTHMA
     Dosage: UNK
     Dates: start: 20050101, end: 20100101
  16. NITROGLYCERIN [Concomitant]
     Indication: CHEST PAIN
     Dosage: UNK
     Dates: start: 20050101, end: 20100101
  17. OMEPRAZOLE [Concomitant]
     Indication: GASTROOESOPHAGEAL REFLUX DISEASE
     Dosage: UNK
     Dates: start: 20050101, end: 20100101
  18. LEVOSALBUTAMOL [Concomitant]
     Indication: ASTHMA
     Dosage: UNK
     Dates: start: 20060101, end: 20080101
  19. AMMONIUM LACTATE [Concomitant]
     Indication: ECZEMA NUMMULAR
     Dosage: UNK
     Dates: start: 20060101, end: 20100101
  20. TRIAMCINOLONE [Concomitant]
     Indication: ECZEMA NUMMULAR
     Dosage: UNK
     Dates: start: 20050101, end: 20100101
  21. AQUAPHOR HEALING OINTMENT [Concomitant]
     Indication: ECZEMA NUMMULAR
     Dosage: UNK
     Dates: start: 20060101, end: 20080101
  22. LEVOSALBUTAMOL [Concomitant]
     Indication: CHRONIC OBSTRUCTIVE PULMONARY DISEASE
  23. ACETAMINOPHEN AND HYDROCODONE BITARTRATE [Concomitant]
     Indication: PAIN IN EXTREMITY
  24. ACETAMINOPHEN AND HYDROCODONE BITARTRATE [Concomitant]
     Indication: BACK PAIN
  25. MUPIROCIN [Concomitant]
     Indication: ANTIBIOTIC THERAPY
     Dosage: UNK
     Dates: start: 20060101, end: 20100101
  26. ACETAMINOPHEN AND HYDROCODONE BITARTRATE [Concomitant]
     Indication: ARTHRALGIA
     Dosage: UNK
     Dates: start: 20060101, end: 20100101

REACTIONS (11)
  - SCHIZOAFFECTIVE DISORDER [None]
  - SUICIDAL BEHAVIOUR [None]
  - POST-TRAUMATIC STRESS DISORDER [None]
  - IRRITABILITY [None]
  - PSYCHOTIC DISORDER [None]
  - DEPRESSION [None]
  - ANGER [None]
  - AGGRESSION [None]
  - ANXIETY [None]
  - BIPOLAR DISORDER [None]
  - HALLUCINATION, AUDITORY [None]
